FAERS Safety Report 15621791 (Version 4)
Quarter: 2019Q3

REPORT INFORMATION
  Report Type: Spontaneous
  Country: US (occurrence: US)
  Receive Date: 20181115
  Receipt Date: 20190709
  Transmission Date: 20191004
  Serious: No
  Sender: FDA-Public Use
  Company Number: US-PFIZER INC-2018459058

PATIENT
  Age: 67 Year
  Sex: Male

DRUGS (2)
  1. XELJANZ XR [Suspect]
     Active Substance: TOFACITINIB CITRATE
     Dosage: 11 MG, UNK
  2. XELJANZ XR [Suspect]
     Active Substance: TOFACITINIB CITRATE
     Dosage: 11 MG, DAILY
     Dates: start: 20181002

REACTIONS (8)
  - Nausea [Unknown]
  - Night sweats [Unknown]
  - Chromaturia [Unknown]
  - Urine odour abnormal [Unknown]
  - White blood cells urine positive [Unknown]
  - Sleep disorder [Unknown]
  - Hyperhidrosis [Unknown]
  - Headache [Unknown]
